FAERS Safety Report 15517555 (Version 3)
Quarter: 2019Q3

REPORT INFORMATION
  Report Type: Spontaneous
  Country: US (occurrence: US)
  Receive Date: 20181017
  Receipt Date: 20190709
  Transmission Date: 20191004
  Serious: Yes (Other)
  Sender: FDA-Public Use
  Company Number: PHEH2018US043451

PATIENT
  Sex: Male

DRUGS (1)
  1. KYMRIAH [Suspect]
     Active Substance: TISAGENLECLEUCEL
     Indication: ACUTE LYMPHOCYTIC LEUKAEMIA
     Dosage: ONE SINGLE DOSE
     Route: 042
     Dates: start: 20180501, end: 20181010

REACTIONS (2)
  - T-lymphocyte count decreased [Unknown]
  - B-lymphocyte count decreased [Unknown]
